FAERS Safety Report 12391222 (Version 2)
Quarter: 2016Q2

REPORT INFORMATION
  Report Type: Spontaneous
  Country: US (occurrence: US)
  Receive Date: 20160520
  Receipt Date: 20160629
  Transmission Date: 20160815
  Serious: No
  Sender: FDA-Public Use
  Company Number: US-ACTELION-A-US2016-136564

PATIENT
  Age: 53 Year
  Sex: Female

DRUGS (3)
  1. FOLIC ACID. [Concomitant]
     Active Substance: FOLIC ACID
     Dosage: 0.4 MG, UNK
  2. OMEPRAZOLE. [Concomitant]
     Active Substance: OMEPRAZOLE
     Dosage: 10 MG, UNK
  3. VALCHLOR [Suspect]
     Active Substance: MECHLORETHAMINE
     Indication: MYCOSIS FUNGOIDES
     Dosage: UNK
     Route: 061
     Dates: start: 20160514, end: 20160609

REACTIONS (7)
  - Gastrointestinal oedema [Unknown]
  - Gastrointestinal disorder [Unknown]
  - Unevaluable event [Unknown]
  - Pruritus [Unknown]
  - Pigmentation disorder [Unknown]
  - Oedema peripheral [Unknown]
  - Erythema [Unknown]
